FAERS Safety Report 6837834-X (Version None)
Quarter: 2010Q3

REPORT INFORMATION
  Report Type: 
  Country: None (occurrence: None)
  Receive Date: 20100713
  Receipt Date: 20070522
  Transmission Date: 20110219
  Serious: No
  Sender: FDA-Public Use
  Company Number: US-PFIZER INC-2007042359

PATIENT
  Sex: Female
  Weight: 97.727 kg

DRUGS (10)
  1. CHANTIX [Suspect]
     Indication: SMOKING CESSATION THERAPY
     Dates: start: 20070513, end: 20070521
  2. ACETYLSALICYLIC ACID [Concomitant]
  3. ALL OTHER THERAPEUTIC PRODUCTS [Concomitant]
  4. MONTELUKAST SODIUM [Concomitant]
  5. PAXIL [Concomitant]
  6. SERETIDE MITE [Concomitant]
  7. VENTOLIN [Concomitant]
     Route: 055
  8. ATROVENT [Concomitant]
  9. PREDNISOLONE [Concomitant]
  10. TYLENOL [Concomitant]

REACTIONS (2)
  - ABDOMINAL PAIN UPPER [None]
  - FLATULENCE [None]
